FAERS Safety Report 23852318 (Version 2)
Quarter: 2024Q2

REPORT INFORMATION
  Report Type: Spontaneous
  Country: KR (occurrence: KR)
  Receive Date: 20240514
  Receipt Date: 20240514
  Transmission Date: 20240715
  Serious: Yes (Hospitalization)
  Sender: FDA-Public Use
  Company Number: KR-JNJFOC-20240515400

PATIENT
  Age: 89 Year
  Sex: Female

DRUGS (1)
  1. SPORANOX [Suspect]
     Active Substance: ITRACONAZOLE
     Indication: Fungal infection
     Dosage: FOR TWO WEEKS
     Route: 048

REACTIONS (2)
  - Acute myocardial infarction [Unknown]
  - Off label use [Unknown]
